FAERS Safety Report 16039618 (Version 1)
Quarter: 2019Q2

REPORT INFORMATION
  Report Type: Spontaneous
  Country: US (occurrence: US)
  Receive Date: 20190305
  Receipt Date: 20190305
  Transmission Date: 20190711
  Serious: Yes (Disabling)
  Sender: FDA-Public Use
  Company Number: None

PATIENT
  Age: 56 Year
  Sex: Female
  Weight: 79.65 kg

DRUGS (2)
  1. LIOTHYRONINE 5 MCG TABLETS [Suspect]
     Active Substance: LIOTHYRONINE
     Indication: HYPOTHYROIDISM
     Dosage: ?          QUANTITY:90 TABLET(S);OTHER FREQUENCY:5 TABLETS PER DAY;?
     Route: 048
     Dates: start: 20181201, end: 20190208
  2. LIOTHYRONINE 5 MCG TABLETS [Suspect]
     Active Substance: LIOTHYRONINE
     Indication: MYOPATHY
     Dosage: ?          QUANTITY:90 TABLET(S);OTHER FREQUENCY:5 TABLETS PER DAY;?
     Route: 048
     Dates: start: 20181201, end: 20190208

REACTIONS (3)
  - Drug ineffective [None]
  - Myopathy [None]
  - Product packaging confusion [None]

NARRATIVE: CASE EVENT DATE: 20190128
